FAERS Safety Report 13586732 (Version 1)
Quarter: 2017Q2

REPORT INFORMATION
  Report Type: Spontaneous
  Country: US (occurrence: US)
  Receive Date: 20170526
  Receipt Date: 20170526
  Transmission Date: 20170830
  Serious: No
  Sender: FDA-Public Use
  Company Number: US-ROCHE-1038324

PATIENT
  Sex: Male

DRUGS (2)
  1. VALTREX [Suspect]
     Active Substance: VALACYCLOVIR HYDROCHLORIDE
     Indication: CHRONIC FATIGUE SYNDROME
  2. VALCYTE [Suspect]
     Active Substance: VALGANCICLOVIR HYDROCHLORIDE
     Indication: CHRONIC FATIGUE SYNDROME
     Route: 065

REACTIONS (4)
  - Nausea [Unknown]
  - Blood pressure decreased [Unknown]
  - Neuropathy peripheral [Unknown]
  - Decreased appetite [Unknown]
